FAERS Safety Report 17096405 (Version 2)
Quarter: 2019Q4

REPORT INFORMATION
  Report Type: Spontaneous
  Country: JP (occurrence: JP)
  Receive Date: 20191202
  Receipt Date: 20191212
  Transmission Date: 20200122
  Serious: Yes (Other)
  Sender: FDA-Public Use
  Company Number: JP-SUN PHARMACEUTICAL INDUSTRIES LTD-2019RR-229366

PATIENT
  Age: 51 Year
  Sex: Female

DRUGS (3)
  1. ESOMEPRAZOLE ASTRAZENECA [Suspect]
     Active Substance: ESOMEPRAZOLE MAGNESIUM
     Indication: EPIGASTRIC DISCOMFORT
     Dosage: 20 MILLIGRAM, QD
     Route: 065
     Dates: start: 201212
  2. VONOPRAZAN [Suspect]
     Active Substance: VONOPRAZAN
     Indication: EPIGASTRIC DISCOMFORT
     Dosage: 20 MILLIGRAM, QD
     Route: 065
     Dates: start: 201503
  3. LANSOPRAZOLE TAKEDA [Suspect]
     Active Substance: LANSOPRAZOLE
     Indication: EPIGASTRIC DISCOMFORT
     Dosage: 15 MILLIGRAM, QD
     Route: 065
     Dates: start: 200808

REACTIONS (1)
  - Gastric polyps [Unknown]
